FAERS Safety Report 4682020-5 (Version None)
Quarter: 2005Q2

REPORT INFORMATION
  Report Type: 
  Country: None (occurrence: None)
  Receive Date: 20050606
  Receipt Date: 20050525
  Transmission Date: 20051028
  Serious: Yes (Hospitalization, Disabling, Other)
  Sender: FDA-Public Use
  Company Number: JP-JNJFOC-20050205092

PATIENT
  Sex: Female
  Weight: 51 kg

DRUGS (34)
  1. REMICADE [Suspect]
     Route: 042
  2. REMICADE [Suspect]
     Route: 042
  3. REMICADE [Suspect]
     Route: 042
  4. REMICADE [Suspect]
     Indication: RHEUMATOID ARTHRITIS
     Route: 042
  5. METHOTREXATE [Suspect]
  6. METHOTREXATE [Suspect]
  7. METHOTREXATE [Suspect]
  8. METHOTREXATE [Suspect]
     Indication: DRUG USE FOR UNKNOWN INDICATION
  9. DIFLUCAN [Suspect]
     Route: 049
  10. DIFLUCAN [Suspect]
     Indication: VAGINAL CANDIDIASIS
     Route: 049
  11. KEFRAL [Suspect]
     Route: 049
  12. KEFRAL [Suspect]
     Route: 049
  13. KEFRAL [Suspect]
     Indication: UPPER RESPIRATORY TRACT INFECTION
     Dosage: 3 C
     Route: 049
  14. PL GRANULES [Suspect]
     Route: 049
  15. PL GRANULES [Suspect]
     Route: 049
  16. PL GRANULES [Suspect]
     Route: 049
  17. PL GRANULES [Suspect]
     Indication: UPPER RESPIRATORY TRACT INFECTION
     Route: 049
  18. PREDNISOLONE [Suspect]
     Route: 049
  19. PREDNISOLONE [Suspect]
     Indication: RHEUMATOID ARTHRITIS
     Route: 049
  20. PREDONINE [Suspect]
     Route: 042
  21. PREDONINE [Suspect]
     Indication: RHEUMATOID ARTHRITIS
     Dosage: ORAL
     Route: 042
  22. RIMATIL [Suspect]
     Indication: RHEUMATOID ARTHRITIS
     Dosage: TREATMENT FOR 6 MONTHS
  23. VOLTAREN [Concomitant]
     Indication: RHEUMATOID ARTHRITIS
     Route: 049
  24. FOLIAMIN [Concomitant]
     Dosage: EVERY TUESDAY, WEDNESDAY AND THURSDAY.
     Route: 049
  25. FOLIAMIN [Concomitant]
     Indication: PROPHYLAXIS
     Dosage: EVERY TUESDAY
     Route: 049
  26. SELBEX [Concomitant]
     Route: 049
  27. HALCION [Concomitant]
     Route: 049
  28. POLARAMINE [Concomitant]
     Route: 049
  29. PYDOXAL [Concomitant]
     Indication: PROPHYLAXIS
     Route: 049
  30. INH [Concomitant]
     Route: 049
  31. RHEUMATREX [Concomitant]
     Dosage: EVERY SUNDAY.
     Route: 049
  32. RHEUMATREX [Concomitant]
     Route: 049
  33. RHEUMATREX [Concomitant]
     Indication: RHEUMATOID ARTHRITIS
     Route: 049
  34. ISCOTIN [Concomitant]
     Route: 049

REACTIONS (16)
  - ABDOMINAL PAIN [None]
  - ACUTE PRERENAL FAILURE [None]
  - ANAEMIA [None]
  - BLINDNESS [None]
  - CEREBRAL INFARCTION [None]
  - EMBOLISM [None]
  - GASTRIC DISORDER [None]
  - GASTROINTESTINAL HAEMORRHAGE [None]
  - HAEMODIALYSIS [None]
  - HEADACHE [None]
  - NEPHROTIC SYNDROME [None]
  - OEDEMA [None]
  - PULMONARY OEDEMA [None]
  - RENAL FAILURE ACUTE [None]
  - UPPER RESPIRATORY TRACT INFECTION [None]
  - VAGINAL CANDIDIASIS [None]
